FAERS Safety Report 20215011 (Version 1)
Quarter: 2021Q4

REPORT INFORMATION
  Report Type: Spontaneous
  Country: FR (occurrence: FR)
  Receive Date: 20211222
  Receipt Date: 20211222
  Transmission Date: 20220303
  Serious: Yes (Death, Life-Threatening, Other)
  Sender: FDA-Public Use
  Company Number: FR-AFSSAPS-NT20200846

PATIENT
  Age: 28 Year
  Sex: Male

DRUGS (8)
  1. PAROXETINE [Suspect]
     Active Substance: PAROXETINE
     Indication: Product used for unknown indication
     Dosage: UNK
     Route: 065
     Dates: end: 202005
  2. MORPHINE [Suspect]
     Active Substance: MORPHINE
     Indication: Pain
     Dosage: UNK
     Route: 065
  3. FENTANYL [Suspect]
     Active Substance: FENTANYL
     Indication: Pain
     Dosage: 400 MICROGRAM, 1DOSE/1HOUR (QH)
     Route: 062
     Dates: end: 20200528
  4. PRAZEPAM [Suspect]
     Active Substance: PRAZEPAM
     Indication: Product used for unknown indication
     Dosage: UNK
     Route: 065
  5. FENTANYL [Suspect]
     Active Substance: FENTANYL
     Indication: Pain
     Dosage: 112 UG/H ()
     Route: 003
  6. FENTANYL [Suspect]
     Active Substance: FENTANYL
     Dosage: 4 DOSAGE FORM, UNK
     Route: 003
  7. METHADONE [Suspect]
     Active Substance: METHADONE HYDROCHLORIDE
     Indication: Product used for unknown indication
     Dosage: UNKNOWN ()
     Route: 048
     Dates: start: 2020, end: 2020
  8. OXAZEPAM [Suspect]
     Active Substance: OXAZEPAM
     Indication: Product used for unknown indication
     Dosage: UNK ()
     Route: 065
     Dates: end: 202005

REACTIONS (3)
  - Asphyxia [Fatal]
  - Toxicity to various agents [Recovered/Resolved]
  - Housebound [Recovered/Resolved]

NARRATIVE: CASE EVENT DATE: 20200501
